FAERS Safety Report 6677657-8 (Version None)
Quarter: 2010Q2

REPORT INFORMATION
  Report Type: 
  Country: None (occurrence: None)
  Receive Date: 20100412
  Receipt Date: 20100211
  Transmission Date: 20101027
  Serious: Yes (Other)
  Sender: FDA-Public Use
  Company Number: FR-ALEXION-A201000105

PATIENT

DRUGS (14)
  1. SOLIRIS [Suspect]
     Indication: TRANSPLANT REJECTION
     Dosage: 1200 MG, SINGLE
     Route: 042
     Dates: start: 20100122, end: 20100122
  2. CORTANCYL [Concomitant]
     Dosage: 40 MG, UNK
  3. TACROLIMUS [Concomitant]
     Dosage: 16 MG, UNK
  4. CELLCEPT [Concomitant]
     Dosage: 2 G, UNK
  5. VELCADE [Concomitant]
     Dosage: 2 MG, UNK
     Dates: start: 20100118
  6. VELCADE [Concomitant]
     Dosage: UNK
     Dates: start: 20100121
  7. VELCADE [Concomitant]
     Dosage: UNK
     Dates: start: 20100125
  8. VELCADE [Concomitant]
     Dosage: UNK
     Dates: start: 20100128
  9. ORACILLINE                         /00001801/ [Concomitant]
  10. BACTRIM [Concomitant]
     Dosage: 400 MG, UNK
  11. ROVALCYTE                          /01542201/ [Concomitant]
     Dosage: 900 MG, UNK
  12. AMLOR [Concomitant]
     Dosage: 10
  13. ATENOLOL [Concomitant]
     Dosage: 100
  14. MOPRAL                             /00661201/ [Concomitant]

REACTIONS (1)
  - RENAL FAILURE ACUTE [None]
